FAERS Safety Report 21298284 (Version 2)
Quarter: 2022Q4

REPORT INFORMATION
  Report Type: Report from Study
  Country: MX (occurrence: MX)
  Receive Date: 20220906
  Receipt Date: 20221019
  Transmission Date: 20230112
  Serious: No
  Sender: FDA-Public Use
  Company Number: MX-NOVARTISPH-NVSC2022MX200438

PATIENT
  Sex: Female
  Weight: 71 kg

DRUGS (1)
  1. TELMISARTAN [Suspect]
     Active Substance: TELMISARTAN
     Indication: Hypertension
     Dosage: 1 DOSAGE FORM, QD (80 MG)
     Route: 048
     Dates: start: 2019, end: 202207

REACTIONS (1)
  - Blood uric acid increased [Not Recovered/Not Resolved]
